FAERS Safety Report 14035384 (Version 1)
Quarter: 2017Q4

REPORT INFORMATION
  Report Type: Spontaneous
  Country: CN (occurrence: CN)
  Receive Date: 20171003
  Receipt Date: 20171003
  Transmission Date: 20180321
  Serious: Yes (Other)
  Sender: FDA-Public Use
  Company Number: CN-BAYER-2017-182234

PATIENT
  Age: 50 Year
  Sex: Male

DRUGS (1)
  1. NEXAVAR [Suspect]
     Active Substance: SORAFENIB
     Indication: HEPATOCELLULAR CARCINOMA
     Dosage: UNK
     Route: 048
     Dates: start: 201709

REACTIONS (9)
  - Blister [None]
  - Gait inability [None]
  - Gait disturbance [None]
  - Pain in extremity [None]
  - Blood uric acid increased [None]
  - Peripheral swelling [None]
  - Feeling hot [None]
  - Pain [None]
  - Wrong technique in product usage process [None]

NARRATIVE: CASE EVENT DATE: 201709
